FAERS Safety Report 6666843-9 (Version None)
Quarter: 2010Q1

REPORT INFORMATION
  Report Type: 
  Country: None (occurrence: None)
  Receive Date: 20100331
  Receipt Date: 20100323
  Transmission Date: 20100710
  Serious: Yes (Hospitalization)
  Sender: FDA-Public Use
  Company Number: 2010JP001716

PATIENT
  Age: 82 Year
  Sex: Male
  Weight: 47.8 kg

DRUGS (16)
  1. VESICARE [Suspect]
     Indication: BENIGN PROSTATIC HYPERPLASIA
     Dosage: 5 MG, UID/QD, ORAL
     Route: 048
     Dates: start: 20100201, end: 20100228
  2. AMITRIPTYLINE HCL [Suspect]
     Indication: BENIGN PROSTATIC HYPERPLASIA
     Dosage: 10 MG, UID/QD, ORAL
     Route: 048
     Dates: start: 20100130, end: 20100226
  3. FAMOTIDINE     (FAMOTIDINE) TABLET [Concomitant]
  4. MAGMIT (MAGNESIUM OXIDE) TABLET [Concomitant]
  5. SLOW-K [Concomitant]
  6. HARNAL (TAMSULOSIN) ORODISPERSIBLE CR TABLET [Concomitant]
  7. AMLODIPINE (AMLODIPINE BESILATE) ORODISPERSIBLE CR TABLET [Concomitant]
  8. LASIX [Concomitant]
  9. PLETAL [Concomitant]
  10. MICARDIS [Concomitant]
  11. DIGOSIN (DIGOXIN) TABLET [Concomitant]
  12. ALDACTONE [Concomitant]
  13. DAIKENTYUTO (HERBAL EXTRACT NOS) POWDER [Concomitant]
  14. GOREI-SAN (HERBAL EXTRACT NOS) POWDER [Concomitant]
  15. MYSLEE (ZOLPIDEM) TABLET [Concomitant]
  16. MEDIPEACE (ETIZOLAM) TABLET [Concomitant]

REACTIONS (6)
  - ABNORMAL BEHAVIOUR [None]
  - DELIRIUM [None]
  - MEMORY IMPAIRMENT [None]
  - RESTLESSNESS [None]
  - SPEECH DISORDER [None]
  - URINARY INCONTINENCE [None]
